FAERS Safety Report 20903326 (Version 1)
Quarter: 2022Q2

REPORT INFORMATION
  Report Type: Spontaneous
  Country: TR (occurrence: TR)
  Receive Date: 20220601
  Receipt Date: 20220601
  Transmission Date: 20220721
  Serious: Yes (Other)
  Sender: FDA-Public Use
  Company Number: TR-BRISTOL-MYERS SQUIBB COMPANY-2022-043302

PATIENT
  Age: 3 Year
  Sex: Male

DRUGS (1)
  1. ABATACEPT [Suspect]
     Active Substance: ABATACEPT
     Indication: Product used for unknown indication
     Dosage: (CTLA-4-IG  FUSION  PROTEIN)  WAS  STARTED IN BOTH PATIENTS (10 MG KG-1PER DOSE, AT 2-WEEK INTERVALS
     Route: 042

REACTIONS (3)
  - Candida infection [Unknown]
  - Pneumonia fungal [Unknown]
  - Off label use [Unknown]
